FAERS Safety Report 4694601-3 (Version None)
Quarter: 2005Q2

REPORT INFORMATION
  Report Type: 
  Country: None (occurrence: None)
  Receive Date: 20050614
  Receipt Date: 20050419
  Transmission Date: 20051028
  Serious: No
  Sender: FDA-Public Use
  Company Number: USA050494711

PATIENT
  Age: 51 Year
  Sex: Male

DRUGS (3)
  1. CIALIS [Suspect]
     Dosage: 20 MG
     Dates: start: 20050326, end: 20050327
  2. ATENOLOL [Concomitant]
  3. CRESTOR [Concomitant]

REACTIONS (7)
  - CHAPPED LIPS [None]
  - FACE OEDEMA [None]
  - FEELING HOT [None]
  - FLUSHING [None]
  - PIGMENTATION LIP [None]
  - RASH PRURITIC [None]
  - SWOLLEN TONGUE [None]
